FAERS Safety Report 5298357-5 (Version None)
Quarter: 2007Q2

REPORT INFORMATION
  Report Type: 
  Country: None (occurrence: None)
  Receive Date: 20070409
  Receipt Date: 20070328
  Transmission Date: 20071010
  Serious: Yes (Life-Threatening, Disabling, Other)
  Sender: FDA-Public Use
  Company Number: S07-UKI-01412-01

PATIENT
  Age: 89 Year
  Sex: Female

DRUGS (12)
  1. CITALOPRAM HYDROBROMIDE [Suspect]
     Dosage: 20 MG QD PO
     Route: 048
     Dates: start: 20040913, end: 20070316
  2. BENDROFLUAZIDE [Suspect]
     Dosage: 2.5 MG QD PO
     Route: 048
     Dates: start: 20070129, end: 20070313
  3. CANDESARTAN [Suspect]
     Dosage: 16 MG QD PO
     Route: 048
     Dates: start: 20021129, end: 20070313
  4. ADCAL-D3 (LEKOVIT CA) [Concomitant]
  5. ASPIRIN [Concomitant]
  6. DICLOFENAC [Concomitant]
  7. FUROSEMIDE [Concomitant]
  8. GLICLAZIDE [Concomitant]
  9. METFORMIN HCL [Concomitant]
  10. OMEPRAZOLE [Concomitant]
  11. TIMOLOL MALEATE [Concomitant]
  12. TRAVATAN [Concomitant]

REACTIONS (2)
  - HYPONATRAEMIA [None]
  - MALAISE [None]
